FAERS Safety Report 7222091-5 (Version None)
Quarter: 2011Q1

REPORT INFORMATION
  Report Type: 
  Country: None (occurrence: None)
  Receive Date: 20110112
  Receipt Date: 20110105
  Transmission Date: 20110831
  Serious: Yes (Hospitalization)
  Sender: FDA-Public Use
  Company Number: JP-ROCHE-747822

PATIENT
  Sex: Male
  Weight: 49 kg

DRUGS (4)
  1. CAPECITABINE [Suspect]
     Indication: GASTRIC CANCER
     Dosage: 2 WEEKS ADMINISTRATION FOLLOWED BY 1 WEEK REST, PERMANENTLY DISCONTINUED ON 02 DEC 2010
     Route: 048
     Dates: start: 20100604, end: 20101202
  2. BRIPLATIN [Suspect]
     Indication: GASTRIC CANCER
     Route: 042
     Dates: start: 20100604, end: 20101029
  3. ERBITUX [Suspect]
     Dosage: SINCE SECOND TIME, PERMANENTLY DISCONTINUED ON 26 NOV 2010
     Route: 042
     Dates: start: 20100601, end: 20101126
  4. ERBITUX [Suspect]
     Indication: GASTRIC CANCER
     Dosage: FIRST TIME
     Route: 042
     Dates: start: 20100604, end: 20100604

REACTIONS (2)
  - GASTRIC STENOSIS [None]
  - DECREASED APPETITE [None]
